FAERS Safety Report 14037965 (Version 1)
Quarter: 2017Q4

REPORT INFORMATION
  Report Type: Spontaneous
  Country: JP (occurrence: JP)
  Receive Date: 20171004
  Receipt Date: 20171004
  Transmission Date: 20180321
  Serious: Yes (Hospitalization)
  Sender: FDA-Public Use
  Company Number: JP-B.I. PHARMACEUTICALS,INC./RIDGEFIELD-2017-NB-004112

PATIENT
  Age: 70 Year
  Sex: Female
  Weight: 39 kg

DRUGS (3)
  1. EDIROL [Concomitant]
     Active Substance: ELDECALCITOL
     Indication: OSTEOPOROSIS
     Route: 048
     Dates: start: 20170704
  2. OXYCONTIN [Concomitant]
     Active Substance: OXYCODONE HYDROCHLORIDE
     Indication: COUGH
     Route: 048
     Dates: start: 20170712, end: 20170814
  3. GILOTRIF [Suspect]
     Active Substance: AFATINIB
     Indication: NON-SMALL CELL LUNG CANCER
     Route: 048
     Dates: start: 20170706, end: 20170714

REACTIONS (1)
  - Lung disorder [Recovered/Resolved]

NARRATIVE: CASE EVENT DATE: 20170714
